FAERS Safety Report 16885148 (Version 2)
Quarter: 2019Q4

REPORT INFORMATION
  Report Type: Spontaneous
  Country: US (occurrence: US)
  Receive Date: 20191004
  Receipt Date: 20191105
  Transmission Date: 20200122
  Serious: No
  Sender: FDA-Public Use
  Company Number: US-PFIZER INC-2019428801

PATIENT
  Age: 59 Year
  Sex: Female
  Weight: 63.49 kg

DRUGS (1)
  1. LOMOTIL [Suspect]
     Active Substance: ATROPINE SULFATE\DIPHENOXYLATE HYDROCHLORIDE
     Indication: DIARRHOEA
     Dosage: UNK (LOMOTIL 2.5/0.025MG TABLET)

REACTIONS (2)
  - Diarrhoea [Unknown]
  - Sleep disorder [Unknown]
